FAERS Safety Report 6183435-9 (Version None)
Quarter: 2009Q2

REPORT INFORMATION
  Report Type: 
  Country: None (occurrence: None)
  Receive Date: 20090507
  Receipt Date: 20090428
  Transmission Date: 20091009
  Serious: Yes (Death, Hospitalization)
  Sender: FDA-Public Use
  Company Number: US-ABBOTT-09P-163-0567386-00

PATIENT
  Age: 63 Year
  Sex: Male
  Weight: 117.13 kg

DRUGS (1)
  1. ZEMPLAR [Suspect]
     Indication: HYPERPARATHYROIDISM
     Dates: start: 20060701, end: 20080101

REACTIONS (2)
  - HYPERNATRAEMIA [None]
  - RENAL FAILURE ACUTE [None]
